FAERS Safety Report 8907012 (Version 1)
Quarter: 2012Q4

REPORT INFORMATION
  Report Type: 
  Country: JP (occurrence: JP)
  Receive Date: 20121114
  Receipt Date: 20121114
  Transmission Date: 20130627
  Serious: Yes (Other)
  Sender: FDA-Public Use
  Company Number: PHHY2012JP103840

PATIENT
  Age: 84 Year
  Sex: Female

DRUGS (1)
  1. RIVASTIGMINE [Suspect]
     Dosage: 18 mg, QD

REACTIONS (4)
  - Cerebral infarction [Recovering/Resolving]
  - Dysphagia [Recovering/Resolving]
  - Choking [Unknown]
  - Mini mental status examination abnormal [None]
